FAERS Safety Report 5392211-6 (Version None)
Quarter: 2007Q3

REPORT INFORMATION
  Report Type: 
  Country: None (occurrence: None)
  Receive Date: 20070720
  Receipt Date: 20070709
  Transmission Date: 20080115
  Serious: Yes (Hospitalization, Disabling, Other)
  Sender: FDA-Public Use
  Company Number: US-JNJFOC-20060204532

PATIENT
  Sex: Female
  Weight: 92.2 kg

DRUGS (34)
  1. REMICADE [Suspect]
     Dosage: ^HIGHER DOSE PRESCRIBED^
     Route: 042
  2. REMICADE [Suspect]
     Route: 042
  3. REMICADE [Suspect]
     Route: 042
  4. REMICADE [Suspect]
     Route: 042
  5. REMICADE [Suspect]
     Indication: RHEUMATOID ARTHRITIS
     Route: 042
  6. MIRAPEX [Concomitant]
  7. MIRAPEX [Concomitant]
     Indication: RESTLESS LEGS SYNDROME
  8. ALBUTEROL [Concomitant]
     Dosage: SOLUTION
  9. ALBUTEROL [Concomitant]
     Dosage: INHALER
  10. OXYCODONE AND ACETAMINOPHEN [Concomitant]
     Dosage: 5/325
  11. CLONAZEPAM [Concomitant]
  12. IBUPROFEN [Concomitant]
  13. PREDNISONE [Concomitant]
  14. PHENAZOPYRIDINE HCL TAB [Concomitant]
  15. PRILOSEC [Concomitant]
  16. ZOLOFT [Concomitant]
  17. CIPRO [Concomitant]
  18. CIPRO [Concomitant]
  19. SULFAMETHOXAZOLE [Concomitant]
  20. MACROBID [Concomitant]
  21. ZYBAN [Concomitant]
  22. COMBIVENT [Concomitant]
  23. AMOX TR-K CLV [Concomitant]
     Dosage: 500-125 MG
  24. FUROSEMIDE [Concomitant]
  25. NAPROXEN [Concomitant]
  26. DOXYCYCLINE [Concomitant]
  27. BENEDRYL [Concomitant]
     Route: 048
  28. BENEDRYL [Concomitant]
     Route: 048
  29. BENEDRYL [Concomitant]
     Route: 048
  30. BENEDRYL [Concomitant]
     Indication: PREMEDICATION
     Route: 048
  31. TYLENOL (CAPLET) [Concomitant]
     Route: 048
  32. TYLENOL (CAPLET) [Concomitant]
     Route: 048
  33. TYLENOL (CAPLET) [Concomitant]
     Route: 048
  34. TYLENOL (CAPLET) [Concomitant]
     Indication: PREMEDICATION
     Route: 048

REACTIONS (13)
  - ANAEMIA [None]
  - CHRONIC OBSTRUCTIVE PULMONARY DISEASE [None]
  - DEMYELINATING POLYNEUROPATHY [None]
  - DRUG INEFFECTIVE [None]
  - FALL [None]
  - GUILLAIN-BARRE SYNDROME [None]
  - NECK PAIN [None]
  - NEUROGENIC BLADDER [None]
  - PYELONEPHRITIS [None]
  - SUICIDAL IDEATION [None]
  - THORACIC OUTLET SYNDROME [None]
  - TRAUMATIC BRAIN INJURY [None]
  - URINARY TRACT INFECTION [None]
